FAERS Safety Report 4461715-2 (Version None)
Quarter: 2004Q3

REPORT INFORMATION
  Report Type: 
  Country: None (occurrence: None)
  Receive Date: 20040924
  Receipt Date: 20040917
  Transmission Date: 20050211
  Serious: Yes (Hospitalization)
  Sender: FDA-Public Use
  Company Number: KII-2004-0013414

PATIENT
  Age: 38 Year
  Sex: Female

DRUGS (3)
  1. MORPHINE SULFATE [Suspect]
     Dosage: ORAL
     Route: 048
  2. HYDROCODONE BITARTRATE W/ ACETAMINOPHEN [Suspect]
     Dosage: ORAL
     Route: 048
  3. ACETAMINOPHEN [Suspect]
     Dosage: ORAL
     Route: 048

REACTIONS (1)
  - DEPRESSED LEVEL OF CONSCIOUSNESS [None]
